FAERS Safety Report 13615650 (Version 1)
Quarter: 2017Q2

REPORT INFORMATION
  Report Type: Spontaneous
  Country: US (occurrence: US)
  Receive Date: 20170605
  Receipt Date: 20170605
  Transmission Date: 20170830
  Serious: Yes (Hospitalization)
  Sender: FDA-Public Use
  Company Number: None

PATIENT
  Age: 84 Year
  Sex: Male
  Weight: 92.4 kg

DRUGS (2)
  1. WARFARIN [Suspect]
     Active Substance: WARFARIN
  2. ASPIRIN. [Suspect]
     Active Substance: ASPIRIN
     Dosage: MG PO
     Route: 048

REACTIONS (4)
  - Haemorrhage [None]
  - Intra-abdominal haematoma [None]
  - Muscle haemorrhage [None]
  - Gastrointestinal oedema [None]

NARRATIVE: CASE EVENT DATE: 20160607
